FAERS Safety Report 14590417 (Version 1)
Quarter: 2018Q1

REPORT INFORMATION
  Report Type: Spontaneous
  Country: FI (occurrence: FI)
  Receive Date: 20180302
  Receipt Date: 20180302
  Transmission Date: 20180509
  Serious: Yes (Hospitalization)
  Sender: FDA-Public Use
  Company Number: FI-009507513-1802FIN011640

PATIENT
  Age: 54 Year
  Sex: Female

DRUGS (9)
  1. ATROPINE. [Concomitant]
     Active Substance: ATROPINE
     Indication: BRADYCARDIA
     Dosage: 0.7 MG,X1
     Route: 042
     Dates: start: 20180206, end: 20180206
  2. CEFUROXIME ORION PHARMA [Concomitant]
     Active Substance: CEFUROXIME
     Indication: PROPHYLAXIS
     Dosage: 1.5,G,X1
     Route: 042
     Dates: start: 20180206, end: 20180206
  3. ROCURONIUM BROMIDE. [Suspect]
     Active Substance: ROCURONIUM BROMIDE
     Indication: NEUROMUSCULAR BLOCKADE
     Dosage: 90 MGX1
     Route: 042
     Dates: start: 20180206, end: 20180206
  4. PROPOFOL. [Concomitant]
     Active Substance: PROPOFOL
     Indication: GENERAL ANAESTHESIA
     Dosage: 200,MG,X1
     Route: 042
     Dates: start: 20180206, end: 20180206
  5. CHIROCAINE [Concomitant]
     Active Substance: LEVOBUPIVACAINE HYDROCHLORIDE
     Indication: ANAESTHESIA
     Dosage: 100,MG,X1
     Route: 058
     Dates: start: 20180206, end: 20180206
  6. BRIDION [Suspect]
     Active Substance: SUGAMMADEX
     Indication: NEUROMUSCULAR BLOCKADE REVERSAL
     Dosage: 600,MG,X1
     Route: 042
     Dates: start: 20180206, end: 20180206
  7. MIDAZOLAM HAMELN [Concomitant]
     Active Substance: MIDAZOLAM HYDROCHLORIDE
     Indication: PREMEDICATION
     Dosage: 1,MG,X1
     Route: 042
     Dates: start: 20180206, end: 20180206
  8. FENTANYL HAMELN [Concomitant]
     Active Substance: FENTANYL CITRATE
     Indication: PAIN
     Dosage: 300,MICROGRAM,X1
     Route: 042
     Dates: start: 20180206, end: 20180206
  9. METRONIDAZOLE BRAUN [Concomitant]
     Active Substance: METRONIDAZOLE
     Indication: PROPHYLAXIS
     Dosage: 500,MG,X1
     Dates: start: 20180206, end: 20180206

REACTIONS (4)
  - Unresponsive to stimuli [Recovered/Resolved]
  - Dyspnoea [Recovered/Resolved]
  - Neuromuscular block prolonged [Recovered/Resolved]
  - Somnolence [Recovered/Resolved]

NARRATIVE: CASE EVENT DATE: 20180206
